FAERS Safety Report 12080880 (Version 2)
Quarter: 2016Q1

REPORT INFORMATION
  Report Type: Spontaneous
  Country: FR (occurrence: FR)
  Receive Date: 20160216
  Receipt Date: 20160303
  Transmission Date: 20160526
  Serious: Yes (Life-Threatening, Hospitalization)
  Sender: FDA-Public Use
  Company Number: FR-BAYER-2016-030440

PATIENT
  Age: 38 Year
  Sex: Female

DRUGS (2)
  1. MIRENA [Suspect]
     Active Substance: LEVONORGESTREL
     Dosage: 20 MCG/24HR, CONT
     Route: 015
     Dates: start: 20140108, end: 20160118
  2. MIRENA [Suspect]
     Active Substance: LEVONORGESTREL
     Dosage: 20 MCG/24HR, CONT
     Route: 015
     Dates: start: 20160118

REACTIONS (16)
  - Painful defaecation [None]
  - Peritonitis [None]
  - Colitis [None]
  - Nausea [None]
  - Abdominal adhesions [None]
  - Device difficult to use [None]
  - Dysmenorrhoea [Recovered/Resolved with Sequelae]
  - Abdominal pain lower [None]
  - Procedural pain [None]
  - Body temperature increased [None]
  - Device difficult to use [None]
  - Device difficult to use [None]
  - Menorrhagia [Recovered/Resolved with Sequelae]
  - Gastrointestinal injury [None]
  - Abdominal distension [None]
  - Uterine perforation [Recovered/Resolved with Sequelae]

NARRATIVE: CASE EVENT DATE: 2014
